FAERS Safety Report 7813952-4 (Version None)
Quarter: 2011Q4

REPORT INFORMATION
  Report Type: 
  Country: None (occurrence: None)
  Receive Date: 20111014
  Receipt Date: 20111012
  Transmission Date: 20120403
  Serious: Yes (Death)
  Sender: FDA-Public Use
  Company Number: CN-PFIZER INC-2011244093

PATIENT

DRUGS (2)
  1. SOLU-MEDROL [Suspect]
     Indication: ASTHMA
  2. SOLU-MEDROL [Suspect]
     Indication: BRONCHOPNEUMONIA
     Dosage: 4 MG/KG, UNK
     Route: 041
     Dates: start: 20110901

REACTIONS (1)
  - RESPIRATORY ARREST [None]
